FAERS Safety Report 4807381-5 (Version None)
Quarter: 2005Q4

REPORT INFORMATION
  Report Type: 
  Country: None (occurrence: None)
  Receive Date: 20051024
  Receipt Date: 20050721
  Transmission Date: 20060501
  Serious: Yes (Hospitalization, Disabling, Other)
  Sender: FDA-Public Use
  Company Number: US-MERCK-0507USA03348

PATIENT
  Age: 38 Year
  Sex: Male
  Weight: 80 kg

DRUGS (3)
  1. VIOXX [Suspect]
     Indication: ARTHRITIS
     Route: 048
     Dates: start: 19991001, end: 20020901
  2. PREVACID [Concomitant]
     Route: 065
  3. ACETAMINOPHEN AND PROPOXYPHENE NAPSYLATE [Concomitant]
     Route: 065

REACTIONS (20)
  - ABSCESS LIMB [None]
  - ACUTE MYOCARDIAL INFARCTION [None]
  - BACK PAIN [None]
  - BLOOD CHOLESTEROL INCREASED [None]
  - CELLULITIS [None]
  - CHEST PAIN [None]
  - CORONARY ARTERY RESTENOSIS [None]
  - COUGH [None]
  - DEPRESSION [None]
  - DYSPNOEA [None]
  - GASTRITIS [None]
  - GASTROOESOPHAGEAL REFLUX DISEASE [None]
  - HYPERTENSION [None]
  - MILD MENTAL RETARDATION [None]
  - MUSCULOSKELETAL CHEST PAIN [None]
  - MYALGIA [None]
  - OESOPHAGITIS [None]
  - ROAD TRAFFIC ACCIDENT [None]
  - UPPER RESPIRATORY TRACT INFECTION [None]
  - VERTIGO POSITIONAL [None]
